FAERS Safety Report 23510712 (Version 1)
Quarter: 2024Q1

REPORT INFORMATION
  Report Type: Spontaneous
  Country: US (occurrence: US)
  Receive Date: 20240211
  Receipt Date: 20240211
  Transmission Date: 20240409
  Serious: No
  Sender: FDA-Public Use
  Company Number: US-AIMMUNE THERAPEUTICS, INC.-2024AIMT00112

PATIENT

DRUGS (2)
  1. PALFORZIA [Suspect]
     Active Substance: PEANUT
     Indication: Food allergy
     Dosage: IDE (0.5-6MG), ONCE
     Route: 048
     Dates: start: 20231205, end: 20231205
  2. PALFORZIA [Suspect]
     Active Substance: PEANUT
     Dosage: IDE UNK MG, ONCE, LAST DOSE PRIOR TO EVENT
     Route: 048
     Dates: start: 20231205, end: 20231205

REACTIONS (1)
  - Nausea [Unknown]
